FAERS Safety Report 7406765-9 (Version None)
Quarter: 2011Q2

REPORT INFORMATION
  Report Type: 
  Country: None (occurrence: None)
  Receive Date: 20110411
  Receipt Date: 20110328
  Transmission Date: 20111010
  Serious: Yes (Other)
  Sender: FDA-Public Use
  Company Number: PHHY2011GB25002

PATIENT
  Age: 95 Year
  Sex: Male

DRUGS (8)
  1. LISINOPRIL [Suspect]
     Indication: HYPERTENSION
     Dosage: 2.5 MG, QD
     Route: 048
     Dates: start: 20060522, end: 20060618
  2. FENTANYL [Concomitant]
     Indication: PAIN
     Route: 061
     Dates: start: 20110308
  3. ACETAMINOPHEN [Concomitant]
     Indication: PAIN
     Dosage: 4 G, QD
     Dates: start: 20070116
  4. LISINOPRIL [Suspect]
     Dosage: 5 MG, QD
     Route: 048
     Dates: start: 20060619
  5. OMEPRAZOLE [Concomitant]
     Indication: GASTROOESOPHAGEAL REFLUX DISEASE
     Dosage: 20 MG, QD
     Dates: start: 20100308
  6. AMITRIPTYLINE HYDROCHLORIDE [Concomitant]
     Indication: DEPRESSION
     Dosage: 10 MG, QD
     Dates: start: 20110214, end: 20110215
  7. LYRICA [Suspect]
     Dosage: 25 MG, QD, IN THE MORNING AND IN THE EVENING
     Route: 048
     Dates: start: 20110219
  8. LEVOTHYROXINE [Concomitant]
     Dosage: 50 UG, UNK
     Dates: start: 20110317

REACTIONS (4)
  - HALLUCINATION [None]
  - SYNCOPE [None]
  - FALL [None]
  - DEPRESSION [None]
